FAERS Safety Report 5684501-4 (Version None)
Quarter: 2008Q1

REPORT INFORMATION
  Report Type: 
  Country: None (occurrence: None)
  Receive Date: 20080328
  Receipt Date: 20080320
  Transmission Date: 20080703
  Serious: Yes (Other)
  Sender: FDA-Public Use
  Company Number: US-SANOFI-SYNTHELABO-A03200800870

PATIENT
  Age: 74 Year
  Sex: Male
  Weight: 68 kg

DRUGS (3)
  1. BETA BLOCKER [Concomitant]
     Indication: HYPERTENSION
     Dosage: UNK
     Route: 065
  2. LEUPROLIDE ACETATE [Suspect]
     Indication: PROSTATE CANCER
     Route: 058
  3. STATIN [Concomitant]
     Indication: HYPERLIPIDAEMIA
     Dosage: UNK
     Route: 065

REACTIONS (8)
  - BODY HEIGHT DECREASED [None]
  - COMPRESSION FRACTURE [None]
  - FATIGUE [None]
  - HOT FLUSH [None]
  - HYPOTONIA [None]
  - KYPHOSCOLIOSIS [None]
  - LIBIDO DECREASED [None]
  - VITAMIN D DEFICIENCY [None]
